FAERS Safety Report 5783017-4 (Version None)
Quarter: 2008Q2

REPORT INFORMATION
  Report Type: 
  Country: None (occurrence: None)
  Receive Date: 20080618
  Receipt Date: 20080618
  Transmission Date: 20081010
  Serious: Yes (Death, Hospitalization)
  Sender: FDA-Public Use
  Company Number: None

PATIENT
  Age: 34 Year
  Sex: Female
  Weight: 54.6 kg

DRUGS (5)
  1. VIREAD [Suspect]
     Indication: HIV INFECTION
     Dosage: 300 MG QD PO
     Route: 048
     Dates: start: 20080422, end: 20080509
  2. EMTRIVA [Suspect]
     Indication: HIV INFECTION
     Dosage: 200 MG QD PO
     Route: 048
     Dates: start: 20080422, end: 20080509
  3. LOPINAVIR/RITONAVIR (ALUVIA) [Suspect]
     Indication: HIV INFECTION
     Dosage: 500 MG BID PO
     Route: 048
     Dates: start: 20080422, end: 20080509
  4. COTRIMOXAZOLE [Concomitant]
  5. FERROUS SULFATE TAB [Concomitant]

REACTIONS (23)
  - ANAEMIA [None]
  - AZOTAEMIA [None]
  - BLOOD ALBUMIN DECREASED [None]
  - BLOOD PHOSPHORUS INCREASED [None]
  - BLOOD SODIUM DECREASED [None]
  - DEEP VEIN THROMBOSIS [None]
  - DYSPNOEA [None]
  - ESCHERICHIA INFECTION [None]
  - FLUCTUANCE [None]
  - GASTROINTESTINAL HAEMORRHAGE [None]
  - GENERAL PHYSICAL HEALTH DETERIORATION [None]
  - INFECTION [None]
  - MUSCLE ABSCESS [None]
  - MUSCLE DISORDER [None]
  - NO THERAPEUTIC RESPONSE [None]
  - OEDEMA PERIPHERAL [None]
  - PAIN IN EXTREMITY [None]
  - PERITONEAL DIALYSIS [None]
  - PLATELET COUNT DECREASED [None]
  - RENAL FAILURE ACUTE [None]
  - SALMONELLOSIS [None]
  - TENDERNESS [None]
  - THROMBOCYTOPENIA [None]
